FAERS Safety Report 7500655-9 (Version None)
Quarter: 2011Q2

REPORT INFORMATION
  Report Type: 
  Country: None (occurrence: None)
  Receive Date: 20110524
  Receipt Date: 20110513
  Transmission Date: 20111010
  Serious: Yes (Hospitalization)
  Sender: FDA-Public Use
  Company Number: FR-MERCK-1105USA02951

PATIENT
  Age: 45 Year
  Sex: Female

DRUGS (10)
  1. EUPRESSYL [Suspect]
     Route: 048
     Dates: end: 20110124
  2. NEXIUM [Concomitant]
     Route: 065
     Dates: end: 20110122
  3. TENORMIN [Concomitant]
     Route: 048
  4. ACETAMINOPHEN [Suspect]
     Route: 048
     Dates: end: 20110122
  5. COZAAR [Suspect]
     Indication: HYPERTENSION
     Route: 048
     Dates: start: 20110119, end: 20110127
  6. NIDREL [Suspect]
     Route: 048
     Dates: end: 20110127
  7. NICARDIPINE HCL [Suspect]
     Route: 048
     Dates: end: 20110122
  8. TRAMADOL HCL [Suspect]
     Route: 065
     Dates: end: 20110124
  9. INDAPAMIDE [Suspect]
     Route: 048
     Dates: end: 20110127
  10. LEXOMIL [Concomitant]
     Route: 048

REACTIONS (1)
  - CYTOLYTIC HEPATITIS [None]
